FAERS Safety Report 16273452 (Version 3)
Quarter: 2019Q2

REPORT INFORMATION
  Report Type: Report from Study
  Country: None (occurrence: TR)
  Receive Date: 20190506
  Receipt Date: 20190522
  Transmission Date: 20190711
  Serious: Yes (Other)
  Sender: FDA-Public Use
  Company Number: TR-ABBVIE-19S-161-2758960-00

PATIENT
  Age: 83 Year
  Sex: Male

DRUGS (2)
  1. DUODOPA [Suspect]
     Active Substance: CARBIDOPA\LEVODOPA
     Indication: PARKINSON^S DISEASE
     Dosage: MD (ML): 7,00, CD (ML): 3,00, ED (ML): 1,00
     Route: 050
     Dates: start: 20171123
  2. DUODOPA [Suspect]
     Active Substance: CARBIDOPA\LEVODOPA
     Dosage: MD (ML): 7,00, CD (ML): 3,10, ED (ML): 1,00
     Route: 050
     Dates: end: 20190520

REACTIONS (4)
  - Embedded device [Recovered/Resolved]
  - Stoma site erythema [Not Recovered/Not Resolved]
  - Stoma site discharge [Not Recovered/Not Resolved]
  - Fall [Recovered/Resolved]

NARRATIVE: CASE EVENT DATE: 201902
